FAERS Safety Report 25412413 (Version 1)
Quarter: 2025Q2

REPORT INFORMATION
  Report Type: Spontaneous
  Country: NL (occurrence: NL)
  Receive Date: 20250609
  Receipt Date: 20250609
  Transmission Date: 20250716
  Serious: Yes (Hospitalization)
  Sender: MERCK SHARP & DOHME LLC
  Company Number: None

PATIENT
  Age: 72 Year
  Sex: Male
  Weight: 71 kg

DRUGS (14)
  1. KEYTRUDA [Suspect]
     Active Substance: PEMBROLIZUMAB
     Indication: Renal cell carcinoma
     Dosage: 150MG 3-WEEKLY
     Dates: start: 20250328, end: 20250328
  2. NADROPARINE injection solution 9500IE/ML / Brand name not specified [Concomitant]
  3. PARACETAMOL CAPSULE 500MG / Brand name not specified [Concomitant]
     Route: 048
  4. METFORMIN TABLET 500MG / Brand name not specified [Concomitant]
     Route: 048
  5. INSULIN GLARGINE 100U/ML injection fluid / ABASAGLAR injection flui... [Concomitant]
  6. INSULIN ASPART INJVLST 100E/ML / Brand name not specified [Concomitant]
  7. PANTOPRAZOLE TABLET stomach acid resistant 40MG / Brand name not sp... [Concomitant]
     Route: 048
  8. ZOPICLON TABLET 7.5MG / Brand name not specified [Concomitant]
     Route: 048
  9. FLUTICASON PROPIONATE NOSE SPRAY 50UG per dose / Brand name not spe... [Concomitant]
     Route: 045
  10. SIMVASTATIN [Concomitant]
     Active Substance: SIMVASTATIN
     Route: 048
  11. MACROGOL/SALTS PDR V ORGANIC (MOVIC/GENERIC NAT) / MOVICOLON NATURA... [Concomitant]
     Route: 048
  12. COLECALCIFEROL CAPSULE 400IE / Brand name not specified [Concomitant]
     Route: 048
  13. GLICLAZIDE TABLET MGA 30MG / Brand name not specified [Concomitant]
     Route: 048
  14. LEVOTHYROXINE TABLET 50UG (SODIUM) / EUTHYROX TABLET 50MCG [Concomitant]
     Route: 048

REACTIONS (1)
  - Renal tubular acidosis [Not Recovered/Not Resolved]
